FAERS Safety Report 10227855 (Version 2)
Quarter: 2014Q2

REPORT INFORMATION
  Report Type: Report from Study
  Country: US (occurrence: US)
  Receive Date: 20140610
  Receipt Date: 20140616
  Transmission Date: 20141212
  Serious: Yes (Hospitalization, Other)
  Sender: FDA-Public Use
  Company Number: US-ABBVIE-14P-163-1245707-00

PATIENT
  Age: 51 Year
  Sex: Male

DRUGS (15)
  1. HUMIRA [Suspect]
     Indication: CROHN^S DISEASE
  2. OXYCODONE [Suspect]
     Indication: PRODUCT USED FOR UNKNOWN INDICATION
  3. ADDERALL [Suspect]
     Indication: PRODUCT USED FOR UNKNOWN INDICATION
  4. VALIUM [Suspect]
     Indication: PRODUCT USED FOR UNKNOWN INDICATION
  5. SOMA [Suspect]
     Indication: PRODUCT USED FOR UNKNOWN INDICATION
  6. LISINOPRIL [Concomitant]
     Indication: HYPERTENSION
     Route: 048
  7. LISINOPRIL [Concomitant]
     Route: 048
  8. NEURONTIN [Concomitant]
     Indication: INSOMNIA
     Route: 048
  9. NEURONTIN [Concomitant]
     Indication: ANXIETY
  10. HYDROXYZINE HYDROCHLORIDE [Concomitant]
     Indication: INSOMNIA
     Dosage: AS NEEDEDDURING THE DAY AND TWO TABLETS AT BEDTIME
     Route: 048
  11. HYDROXYZINE HYDROCHLORIDE [Concomitant]
     Indication: ANXIETY
  12. ZIPRASIDONE HCL [Concomitant]
     Indication: AFFECTIVE DISORDER
     Route: 048
  13. OMEPRAZOLE [Concomitant]
     Indication: GASTROOESOPHAGEAL REFLUX DISEASE
  14. AMITRIPTYLINE HCL [Concomitant]
     Indication: INSOMNIA
     Dosage: AT BEDTIME
     Route: 048
  15. AMITRIPTYLINE HCL [Concomitant]
     Indication: PAIN

REACTIONS (6)
  - Accidental overdose [Recovered/Resolved]
  - Unevaluable event [Recovered/Resolved]
  - Pneumonia [Recovered/Resolved]
  - Diarrhoea [Unknown]
  - Abdominal pain upper [Unknown]
  - Memory impairment [Unknown]
